FAERS Safety Report 18323431 (Version 9)
Quarter: 2022Q4

REPORT INFORMATION
  Report Type: Spontaneous
  Country: BR (occurrence: BR)
  Receive Date: 20200929
  Receipt Date: 20221219
  Transmission Date: 20230113
  Serious: Yes (Hospitalization, Other)
  Sender: FDA-Public Use
  Company Number: BR-GLAXOSMITHKLINE-BR2020AMR190328

PATIENT

DRUGS (6)
  1. NUCALA [Suspect]
     Active Substance: MEPOLIZUMAB
     Indication: Asthma
     Dosage: 100 MG, Z (EVERY 4 WEEKS), EVERY 30 DAYS
     Dates: start: 20200929
  2. BUDESONIDE\FORMOTEROL FUMARATE [Concomitant]
     Active Substance: BUDESONIDE\FORMOTEROL FUMARATE
     Indication: Product used for unknown indication
     Dosage: UNK, QD, ALENIA12/400
  3. DIOVAN [Concomitant]
     Active Substance: VALSARTAN
     Indication: Product used for unknown indication
     Dosage: UNK
  4. XARELTO [Concomitant]
     Active Substance: RIVAROXABAN
     Indication: Product used for unknown indication
     Dosage: 15 MG
  5. NASONEX [Concomitant]
     Active Substance: MOMETASONE FUROATE
     Indication: Product used for unknown indication
     Dosage: UNK, QD
  6. COVID 19 VACCINE [Concomitant]
     Indication: Prophylaxis
     Dosage: UNK

REACTIONS (11)
  - Restless legs syndrome [Recovered/Resolved]
  - Rhabdomyolysis [Recovered/Resolved]
  - Influenza like illness [Unknown]
  - Condition aggravated [Recovered/Resolved]
  - Nausea [Recovered/Resolved]
  - Nasal congestion [Recovered/Resolved]
  - Therapy interrupted [Unknown]
  - Injection site pain [Unknown]
  - Gait disturbance [Unknown]
  - Social problem [Unknown]
  - Inappropriate schedule of product administration [Unknown]

NARRATIVE: CASE EVENT DATE: 20221207
